FAERS Safety Report 10289382 (Version 1)
Quarter: 2014Q3

REPORT INFORMATION
  Report Type: Spontaneous
  Country: GB (occurrence: GB)
  Receive Date: 20140710
  Receipt Date: 20140710
  Transmission Date: 20150326
  Serious: Yes (Hospitalization)
  Sender: FDA-Public Use
  Company Number: GB-ACCORD-024590

PATIENT
  Age: 76 Year
  Sex: Male
  Weight: 82.56 kg

DRUGS (9)
  1. METHOTREXATE [Suspect]
     Active Substance: METHOTREXATE
     Indication: RHEUMATOID ARTHRITIS
     Dosage: 8 TABLETS EVERY FRIDAY
     Route: 048
     Dates: start: 2013, end: 201406
  2. SPIRIVA [Concomitant]
     Active Substance: TIOTROPIUM BROMIDE MONOHYDRATE
  3. AMOXICILLIN. [Concomitant]
     Active Substance: AMOXICILLIN
  4. CLARITHROMYCIN/CLARITHROMYCIN LACTOBIONATE [Concomitant]
  5. IBUPROFEN. [Concomitant]
     Active Substance: IBUPROFEN
     Indication: PAIN
     Dosage: AS NECESSARY
  6. AMITRIPTYLINE [Concomitant]
     Active Substance: AMITRIPTYLINE
  7. FOLIC ACID. [Concomitant]
     Active Substance: FOLIC ACID
  8. PARACETAMOL [Concomitant]
     Active Substance: ACETAMINOPHEN
  9. LANSOPRAZOLE. [Concomitant]
     Active Substance: LANSOPRAZOLE

REACTIONS (24)
  - Infection [Recovering/Resolving]
  - Mood altered [Recovering/Resolving]
  - Muscular weakness [Recovering/Resolving]
  - Respiratory tract inflammation [Recovering/Resolving]
  - Vomiting [Recovering/Resolving]
  - Diarrhoea [Recovering/Resolving]
  - Melaena [Recovering/Resolving]
  - Erectile dysfunction [Recovering/Resolving]
  - Eye irritation [Recovering/Resolving]
  - Arthralgia [Recovering/Resolving]
  - Oral pain [Recovering/Resolving]
  - Rash [Recovering/Resolving]
  - Balance disorder [Recovering/Resolving]
  - Constipation [Recovering/Resolving]
  - Somnolence [Recovering/Resolving]
  - Myalgia [Recovering/Resolving]
  - Peripheral swelling [Unknown]
  - Pyrexia [Recovered/Resolved with Sequelae]
  - Vision blurred [Recovering/Resolving]
  - Fatigue [Recovering/Resolving]
  - Headache [Recovered/Resolved]
  - Dyspnoea [Recovering/Resolving]
  - Decreased appetite [Recovering/Resolving]
  - Gingival pain [Recovering/Resolving]

NARRATIVE: CASE EVENT DATE: 201406
